FAERS Safety Report 19871431 (Version 1)
Quarter: 2021Q3

REPORT INFORMATION
  Report Type: Spontaneous
  Country: US (occurrence: US)
  Receive Date: 20210922
  Receipt Date: 20210922
  Transmission Date: 20211014
  Serious: Yes (Hospitalization)
  Sender: FDA-Public Use
  Company Number: None

PATIENT
  Sex: Female

DRUGS (1)
  1. VERZENIO [Suspect]
     Active Substance: ABEMACICLIB
     Indication: BREAST CANCER FEMALE
     Dosage: OTHER DOSE:1 TABLET;? TO ON HOLD
     Route: 048
     Dates: start: 20210107

REACTIONS (2)
  - Therapy interrupted [None]
  - Gallbladder disorder [None]
